FAERS Safety Report 18724625 (Version 1)
Quarter: 2021Q1

REPORT INFORMATION
  Report Type: Spontaneous
  Country: US (occurrence: US)
  Receive Date: 20210111
  Receipt Date: 20210111
  Transmission Date: 20210419
  Serious: Yes (Life-Threatening, Other)
  Sender: FDA-Public Use
  Company Number: None

PATIENT
  Age: 68 Year
  Sex: Male
  Weight: 84.6 kg

DRUGS (14)
  1. ATENOLOL. [Concomitant]
     Active Substance: ATENOLOL
  2. OXYCODONE [Concomitant]
     Active Substance: OXYCODONE
  3. CHLORHEXIDINE GLUCONATE 0.12% [Suspect]
     Active Substance: CHLORHEXIDINE GLUCONATE
     Indication: PNEUMONIA
     Route: 049
     Dates: start: 20201009, end: 20201026
  4. AMANTADINE. [Concomitant]
     Active Substance: AMANTADINE HYDROCHLORIDE
  5. LEVETIRACETAM. [Concomitant]
     Active Substance: LEVETIRACETAM
  6. CHLORHEXIDINE GLUCONATE 0.12% [Suspect]
     Active Substance: CHLORHEXIDINE GLUCONATE
     Indication: PROPHYLAXIS
     Route: 049
     Dates: start: 20201009, end: 20201026
  7. CEFTRIAXONE. [Concomitant]
     Active Substance: CEFTRIAXONE
  8. FAMOTIDINE. [Concomitant]
     Active Substance: FAMOTIDINE
  9. LORAZEPAM. [Concomitant]
     Active Substance: LORAZEPAM
  10. NEOMYCIN?BACITRACIN ZN?POLYMYXIN [Concomitant]
  11. ACETAMINOPHEN. [Concomitant]
     Active Substance: ACETAMINOPHEN
  12. ENOXAPARIN [Concomitant]
     Active Substance: ENOXAPARIN
  13. ARTIFICIAL LUBRICANT OPHTHALMIC OINTMENT [Concomitant]
  14. HYDROMORPHONE [Concomitant]
     Active Substance: HYDROMORPHONE

REACTIONS (8)
  - Pathogen resistance [None]
  - Burkholderia infection [None]
  - Atelectasis [None]
  - Lung consolidation [None]
  - Serratia infection [None]
  - Sepsis [None]
  - Escherichia infection [None]
  - Sputum culture positive [None]

NARRATIVE: CASE EVENT DATE: 20201018
